FAERS Safety Report 22237507 (Version 1)
Quarter: 2023Q2

REPORT INFORMATION
  Report Type: Spontaneous
  Country: US (occurrence: US)
  Receive Date: 20230421
  Receipt Date: 20230421
  Transmission Date: 20230721
  Serious: Yes (Other)
  Sender: FDA-Public Use
  Company Number: US-APOTEX-2023AP007078

PATIENT
  Age: 69 Year
  Sex: Male

DRUGS (3)
  1. ACYCLOVIR [Suspect]
     Active Substance: ACYCLOVIR
     Indication: Herpes simplex encephalitis
     Dosage: UNK
     Route: 065
  2. MANNITOL [Concomitant]
     Active Substance: MANNITOL
     Indication: Altered state of consciousness
     Dosage: 0.5 MILLIGRAM/KILOGRAM, Q.6H
     Route: 065
  3. MANNITOL [Concomitant]
     Active Substance: MANNITOL
     Dosage: UNK (DOSAGE WAS INCREASED)
     Route: 065

REACTIONS (1)
  - Crystal nephropathy [Unknown]
